FAERS Safety Report 9823114 (Version 2)
Quarter: 2014Q1

REPORT INFORMATION
  Report Type: Report from Study
  Country: NL (occurrence: NL)
  Receive Date: 20140116
  Receipt Date: 20140225
  Transmission Date: 20141002
  Serious: Yes (Death)
  Sender: FDA-Public Use
  Company Number: PHHY2014NL004261

PATIENT
  Sex: Male

DRUGS (9)
  1. ZOMETA [Suspect]
     Indication: PLASMA CELL MYELOMA
     Dosage: 4 MG/ 100 ML, ONCE EVERY 4 WEEKS
     Route: 042
     Dates: start: 2012
  2. ZOMETA [Suspect]
     Dosage: 4 MG/ 100 ML, ONCE EVERY 4 WEEKS
     Route: 042
     Dates: start: 20130418
  3. ZOMETA [Suspect]
     Dosage: 4 MG/ 100 ML, ONCE EVERY 4 WEEKS
     Route: 042
     Dates: start: 20131125
  4. ZOMETA [Suspect]
     Dosage: 4 MG/ 100 ML, ONCE EVERY 4 WEEKS
     Route: 042
     Dates: start: 20131223
  5. DEXA A [Concomitant]
     Dosage: 40 MG, UNK
  6. LENALIDOMIDE [Concomitant]
     Dosage: 1X25
  7. ASA [Concomitant]
     Dosage: 1X80
  8. OMEPRAZOLE [Concomitant]
     Dosage: 1X40
  9. HALDOL [Concomitant]
     Dosage: 1 MG, ONCE

REACTIONS (2)
  - Plasma cell myeloma [Fatal]
  - Malignant neoplasm progression [Fatal]
